FAERS Safety Report 6517758-8 (Version None)
Quarter: 2009Q4

REPORT INFORMATION
  Report Type: 
  Country: None (occurrence: None)
  Receive Date: 20091224
  Receipt Date: 20091218
  Transmission Date: 20100525
  Serious: Yes (Hospitalization)
  Sender: FDA-Public Use
  Company Number: JP-NOVOPROD-302374

PATIENT
  Age: 53 Year
  Sex: Male

DRUGS (2)
  1. NOVORAPID 30 MIX CHU FLEXPEN [Suspect]
     Indication: INSULIN-REQUIRING TYPE 2 DIABETES MELLITUS
     Dosage: UNK
     Route: 058
     Dates: start: 20040101, end: 20090101
  2. AMARYL [Concomitant]

REACTIONS (3)
  - HYPOGLYCAEMIA [None]
  - INSULIN RESISTANCE [None]
  - RENAL IMPAIRMENT [None]
